FAERS Safety Report 14258890 (Version 1)
Quarter: 2017Q4

REPORT INFORMATION
  Report Type: Spontaneous
  Country: US (occurrence: US)
  Receive Date: 20171207
  Receipt Date: 20171207
  Transmission Date: 20180321
  Serious: No
  Sender: FDA-Public Use
  Company Number: US-ALLERGAN-1734317US

PATIENT
  Sex: Female

DRUGS (1)
  1. FEMCON FE [Suspect]
     Active Substance: ETHINYL ESTRADIOL\NORETHINDRONE ACETATE
     Indication: MENSTRUATION IRREGULAR
     Dosage: 1 DF, QD
     Route: 048
     Dates: start: 2007

REACTIONS (3)
  - Drug dose omission [Unknown]
  - Off label use [Unknown]
  - Menorrhagia [Unknown]
